FAERS Safety Report 5183822-1 (Version None)
Quarter: 2006Q4

REPORT INFORMATION
  Report Type: 
  Country: None (occurrence: None)
  Receive Date: 20061220
  Receipt Date: 20061214
  Transmission Date: 20070319
  Serious: Yes (Hospitalization)
  Sender: FDA-Public Use
  Company Number: US-GLAXOSMITHKLINE-A0631620A

PATIENT
  Age: 40 Year
  Sex: Male

DRUGS (2)
  1. WELLBUTRIN [Suspect]
     Indication: DEPRESSION
     Route: 048
     Dates: start: 20060901, end: 20061006
  2. NO CONCURRENT MEDICATION [Concomitant]

REACTIONS (3)
  - CRYING [None]
  - FEELING JITTERY [None]
  - SUICIDE ATTEMPT [None]
